FAERS Safety Report 12920980 (Version 1)
Quarter: 2016Q4

REPORT INFORMATION
  Report Type: Spontaneous
  Country: US (occurrence: US)
  Receive Date: 20161107
  Receipt Date: 20161107
  Transmission Date: 20170207
  Serious: Yes (Hospitalization)
  Sender: FDA-Public Use
  Company Number: None

PATIENT
  Age: 86 Year
  Sex: Male
  Weight: 80.5 kg

DRUGS (1)
  1. WARFARIN [Suspect]
     Active Substance: WARFARIN
     Indication: DEEP VEIN THROMBOSIS
     Dosage: PM
     Route: 048
     Dates: start: 20160504, end: 20160826

REACTIONS (2)
  - Haemorrhage [None]
  - Thrombocytopenia [None]

NARRATIVE: CASE EVENT DATE: 20160825
